FAERS Safety Report 6999804-0 (Version None)
Quarter: 2010Q3

REPORT INFORMATION
  Report Type: 
  Country: None (occurrence: None)
  Receive Date: 20100920
  Receipt Date: 20100915
  Transmission Date: 20110219
  Serious: Yes (Hospitalization)
  Sender: FDA-Public Use
  Company Number: US-BRISTOL-MYERS SQUIBB COMPANY-15266257

PATIENT
  Age: 63 Year
  Sex: Female

DRUGS (7)
  1. ORENCIA [Suspect]
     Indication: RHEUMATOID ARTHRITIS
     Dosage: RECEIVED SECOND INFUSION ON 28JUL10.
     Route: 042
     Dates: start: 20100714
  2. DYAZIDE [Concomitant]
     Indication: HYPERTENSION
     Dates: start: 20090101
  3. PREDNISONE [Concomitant]
  4. SYNTHROID [Concomitant]
  5. ASPIRIN [Concomitant]
  6. VITAMIN B-12 [Concomitant]
  7. VITAMIN D [Concomitant]

REACTIONS (2)
  - DEEP VEIN THROMBOSIS [None]
  - PULMONARY EMBOLISM [None]
